FAERS Safety Report 10300361 (Version 1)
Quarter: 2014Q3

REPORT INFORMATION
  Report Type: Spontaneous
  Country: JP (occurrence: JP)
  Receive Date: 20140712
  Receipt Date: 20140712
  Transmission Date: 20150326
  Serious: Yes (Death)
  Sender: FDA-Public Use
  Company Number: PHHY2004JP005761

PATIENT
  Age: 40 Year
  Sex: Male

DRUGS (1)
  1. GLIVEC [Suspect]
     Active Substance: IMATINIB MESYLATE
     Indication: CHRONIC MYELOID LEUKAEMIA
     Dosage: 400 MG, DAILY
     Dates: start: 200405

REACTIONS (3)
  - Eyelid oedema [Recovered/Resolved]
  - Chronic myeloid leukaemia [Fatal]
  - Weight increased [Recovered/Resolved]

NARRATIVE: CASE EVENT DATE: 201108
